FAERS Safety Report 4882046-2 (Version None)
Quarter: 2006Q1

REPORT INFORMATION
  Report Type: 
  Country: None (occurrence: None)
  Receive Date: 20060112
  Receipt Date: 20060106
  Transmission Date: 20060701
  Serious: Yes (Hospitalization)
  Sender: FDA-Public Use
  Company Number: TAP2006Q00030

PATIENT
  Age: 32 Year
  Sex: Female
  Weight: 47 kg

DRUGS (5)
  1. LEUPRORELIN ACETATE (LEUPROLIDE ACETATE) [Suspect]
     Indication: INFERTILITY FEMALE
     Dosage: 0.5 MG, 1 IN 1 D,; 0.25 MG,
  2. PROGESTERONE VAGINAL SUPPOSITORIES (PROGESTERONE) [Concomitant]
  3. ORAL CONTRACEPTIVES (ORAL CONTRACEPTIVE NOS) [Concomitant]
  4. RECOMBINANT FSH (SERUM GONADOTROPHIN) [Concomitant]
  5. PERGONAL [Concomitant]

REACTIONS (2)
  - DEEP VEIN THROMBOSIS [None]
  - OVARIAN HYPERSTIMULATION SYNDROME [None]
